FAERS Safety Report 8278654-1 (Version None)
Quarter: 2012Q2

REPORT INFORMATION
  Report Type: 
  Country: None (occurrence: None)
  Receive Date: 20120412
  Receipt Date: 20110823
  Transmission Date: 20120825
  Serious: No
  Sender: FDA-Public Use
  Company Number: US-ASTRAZENECA-2011SE17267

PATIENT
  Age: 60 Year
  Sex: Female

DRUGS (1)
  1. NEXIUM [Suspect]
     Route: 048

REACTIONS (8)
  - SJOGREN'S SYNDROME [None]
  - INTERVERTEBRAL DISC PROTRUSION [None]
  - DYSPHAGIA [None]
  - MALAISE [None]
  - ILL-DEFINED DISORDER [None]
  - BONE DENSITY DECREASED [None]
  - SYSTEMIC LUPUS ERYTHEMATOSUS [None]
  - OESOPHAGEAL DISORDER [None]
